FAERS Safety Report 15572310 (Version 4)
Quarter: 2019Q2

REPORT INFORMATION
  Report Type: Report from Study
  Country: US (occurrence: ZA)
  Receive Date: 20181031
  Receipt Date: 20190626
  Transmission Date: 20190711
  Serious: Yes (Death, Hospitalization, Other)
  Sender: FDA-Public Use
  Company Number: US-SUNOVION-2018SUN004270

PATIENT
  Sex: Male

DRUGS (2)
  1. THEOPHYLLINE [Suspect]
     Active Substance: THEOPHYLLINE ANHYDROUS
     Indication: ASTHMA
     Dosage: 200 MG, UNK
     Route: 048
     Dates: start: 201901
  2. GLYCOPYRROLATE. [Suspect]
     Active Substance: GLYCOPYRROLATE
     Indication: ASTHMA
     Dosage: 50 ?G
     Route: 048
     Dates: start: 201810, end: 201905

REACTIONS (6)
  - Death [Fatal]
  - Colitis [Unknown]
  - Pain [Unknown]
  - Lung neoplasm malignant [Unknown]
  - Lung infection [Unknown]
  - Cholecystitis infective [Unknown]
